FAERS Safety Report 6648282-X (Version None)
Quarter: 2010Q1

REPORT INFORMATION
  Report Type: 
  Country: None (occurrence: None)
  Receive Date: 20100318
  Receipt Date: 20100309
  Transmission Date: 20100710
  Serious: Yes (Other)
  Sender: FDA-Public Use
  Company Number: 1000012435

PATIENT
  Age: 54 Year
  Sex: Female

DRUGS (3)
  1. NEBIVOLOL HCL [Suspect]
     Indication: HYPERTENSION
     Dosage: 5 MG (5 MG, 1 IN 1 DAY), ORAL
     Route: 048
  2. COTAREG [Suspect]
     Indication: HYPERTENSION
     Dosage: 160/12/5 MG (1 IN 1 D), ORAL
     Route: 048
     Dates: start: 20071201, end: 20091213
  3. LEVOTHYROXINE SODIUM [Concomitant]

REACTIONS (4)
  - ASTHENIA [None]
  - DEPRESSED MOOD [None]
  - DIZZINESS [None]
  - URINARY TRACT INFECTION [None]
